FAERS Safety Report 18134868 (Version 4)
Quarter: 2020Q4

REPORT INFORMATION
  Report Type: Spontaneous
  Country: JP (occurrence: JP)
  Receive Date: 20200811
  Receipt Date: 20201231
  Transmission Date: 20210113
  Serious: Yes (Death, Life-Threatening, Hospitalization, Other)
  Sender: FDA-Public Use
  Company Number: JP-ELI_LILLY_AND_COMPANY-JP202008003271

PATIENT
  Age: 62 Year
  Sex: Female
  Weight: 87 kg

DRUGS (26)
  1. UPTRAVI [Suspect]
     Active Substance: SELEXIPAG
     Dosage: 1.2 MG, BID
     Route: 048
     Dates: start: 20170527, end: 20170714
  2. UPTRAVI [Suspect]
     Active Substance: SELEXIPAG
     Dosage: 1.4 MG, BID
     Route: 048
     Dates: start: 20170715, end: 20170728
  3. UPTRAVI [Suspect]
     Active Substance: SELEXIPAG
     Dosage: 1.4 MG, BID
     Route: 048
     Dates: start: 20170804, end: 20170818
  4. UPTRAVI [Suspect]
     Active Substance: SELEXIPAG
     Dosage: 0.8 MG, BID
     Route: 048
     Dates: start: 20170401, end: 20170428
  5. UPTRAVI [Suspect]
     Active Substance: SELEXIPAG
     Dosage: 1.0 MG, BID
     Route: 048
     Dates: start: 20170429, end: 20170512
  6. UPTRAVI [Suspect]
     Active Substance: SELEXIPAG
     Dosage: 1.2 MG, BID
     Route: 048
     Dates: start: 20170513, end: 20170519
  7. RELVAR ELLIPTA [FLUTICASONE FUROATE;VILANTERO [Concomitant]
     Indication: ASTHMA
     Dosage: UNK, UNKNOWN
     Route: 065
     Dates: start: 20170318, end: 20190613
  8. SPIRONOLACTONE. [Concomitant]
     Active Substance: SPIRONOLACTONE
     Indication: RIGHT VENTRICULAR FAILURE
     Dosage: 25 MG, DAILY
     Route: 065
     Dates: end: 20190613
  9. BENIDIPINE HYDROCHLORIDE [Concomitant]
     Active Substance: BENIDIPINE HYDROCHLORIDE
     Indication: ANGINA PECTORIS
     Dosage: 8 MG, DAILY
     Route: 065
     Dates: end: 20190613
  10. REVATIO [Concomitant]
     Active Substance: SILDENAFIL CITRATE
     Indication: PULMONARY ARTERIAL HYPERTENSION
     Dosage: 60 MG, DAILY
     Route: 065
     Dates: end: 20190613
  11. WARFARIN [Concomitant]
     Active Substance: WARFARIN
     Indication: PRODUCT USED FOR UNKNOWN INDICATION
     Dosage: 5 MG, DAILY
     Route: 065
     Dates: end: 20180413
  12. KIPRES [Concomitant]
     Active Substance: MONTELUKAST SODIUM
     Indication: ASTHMA
     Dosage: 10 MG, DAILY
     Route: 065
     Dates: end: 20180329
  13. UPTRAVI [Suspect]
     Active Substance: SELEXIPAG
     Dosage: 0.6 MG, BID
     Route: 048
     Dates: start: 20170318, end: 20170331
  14. UPTRAVI [Suspect]
     Active Substance: SELEXIPAG
     Dosage: 1.6 MG, BID
     Route: 048
     Dates: start: 20170729, end: 20170803
  15. UPTRAVI [Suspect]
     Active Substance: SELEXIPAG
     Dosage: 1.2 MG, BID
     Route: 048
     Dates: start: 20170819, end: 20180612
  16. NIFEDIPINE. [Concomitant]
     Active Substance: NIFEDIPINE
     Indication: ANGINA PECTORIS
     Dosage: 60 MG, DAILY
     Route: 065
     Dates: end: 20170714
  17. SYMBICORT [Concomitant]
     Active Substance: BUDESONIDE\FORMOTEROL FUMARATE DIHYDRATE
     Indication: ASTHMA
     Dosage: UNK, UNKNOWN
     Route: 065
     Dates: end: 20170317
  18. UPTRAVI [Suspect]
     Active Substance: SELEXIPAG
     Dosage: 1.6 MG, BID
     Route: 048
     Dates: start: 20180613, end: 20190612
  19. FUROSEMIDE. [Concomitant]
     Active Substance: FUROSEMIDE
     Indication: RIGHT VENTRICULAR FAILURE
     Dosage: 80 MG, DAILY
     Route: 065
     Dates: end: 20190613
  20. HERBESSER [Concomitant]
     Active Substance: DILTIAZEM HYDROCHLORIDE
     Indication: ANGINA PECTORIS
     Dosage: 100 MG, DAILY
     Route: 065
     Dates: end: 20180426
  21. ADCIRCA [Suspect]
     Active Substance: TADALAFIL
     Indication: PULMONARY ARTERIAL HYPERTENSION
     Dosage: 40 MG, DAILY
     Route: 065
  22. UPTRAVI [Suspect]
     Active Substance: SELEXIPAG
     Indication: PULMONARY ARTERIAL HYPERTENSION
     Dosage: 0.4 MG, BID
     Route: 048
     Dates: start: 20170225, end: 20170317
  23. UPTRAVI [Suspect]
     Active Substance: SELEXIPAG
     Dosage: 1.0 MG, BID
     Route: 048
     Dates: start: 20170520, end: 20170526
  24. VANCOMYCIN HYDROCHLORIDE. [Suspect]
     Active Substance: VANCOMYCIN HYDROCHLORIDE
     Indication: PNEUMONIA
     Dosage: UNK, UNKNOWN
     Route: 041
     Dates: start: 20190523, end: 20190530
  25. OPSUMIT [Concomitant]
     Active Substance: MACITENTAN
     Indication: PULMONARY ARTERIAL HYPERTENSION
     Dosage: 10 MG, DAILY
     Route: 065
     Dates: end: 20190613
  26. SAMSCA [Concomitant]
     Active Substance: TOLVAPTAN
     Indication: RIGHT VENTRICULAR FAILURE
     Dosage: 7.5 MG, DAILY
     Route: 065
     Dates: start: 20170225, end: 20190613

REACTIONS (13)
  - Sepsis [Fatal]
  - Headache [Recovering/Resolving]
  - Respiratory failure [Recovering/Resolving]
  - Brain natriuretic peptide increased [Not Recovered/Not Resolved]
  - Diarrhoea [Recovering/Resolving]
  - Headache [Recovered/Resolved]
  - Pericarditis infective [Fatal]
  - Nausea [Recovered/Resolved]
  - Platelet count decreased [Fatal]
  - C-reactive protein increased [Unknown]
  - Pneumonia [Recovered/Resolved]
  - Colon cancer [Recovered/Resolved]
  - Pneumonia [Fatal]

NARRATIVE: CASE EVENT DATE: 20170512
